FAERS Safety Report 7053320-9 (Version None)
Quarter: 2010Q4

REPORT INFORMATION
  Report Type: 
  Country: None (occurrence: None)
  Receive Date: 20101020
  Receipt Date: 20101007
  Transmission Date: 20110411
  Serious: Yes (Other)
  Sender: FDA-Public Use
  Company Number: PHHY2010CA42326

PATIENT
  Sex: Female

DRUGS (3)
  1. ACLASTA/ZOLEDRONATE T29581+A+ [Suspect]
     Indication: OSTEOPOROSIS
     Dosage: 5MG/100ML
     Dates: start: 20080101
  2. VITAMIN D [Concomitant]
     Dosage: UNK
     Dates: start: 20020101
  3. CALCIUM [Concomitant]
     Dosage: UNK
     Dates: start: 20020101

REACTIONS (4)
  - DECREASED ACTIVITY [None]
  - FALL [None]
  - FOREARM FRACTURE [None]
  - WRIST FRACTURE [None]
